FAERS Safety Report 12954765 (Version 5)
Quarter: 2018Q2

REPORT INFORMATION
  Report Type: Spontaneous
  Country: US (occurrence: US)
  Receive Date: 20161118
  Receipt Date: 20180530
  Transmission Date: 20180711
  Serious: Yes (Hospitalization, Disabling, Other)
  Sender: FDA-Public Use
  Company Number: US-ENDO PHARMACEUTICALS INC.-2016-006877

PATIENT
  Age: 74 Year
  Sex: Male
  Weight: 87.53 kg

DRUGS (4)
  1. TESTIM [Suspect]
     Active Substance: TESTOSTERONE
     Indication: ANDROGEN REPLACEMENT THERAPY
     Dosage: 50 MG, UNKNOWN
     Route: 062
     Dates: start: 20061017, end: 20101025
  2. AGGRENOX [Concomitant]
     Active Substance: ASPIRIN\DIPYRIDAMOLE
     Indication: TRANSIENT ISCHAEMIC ATTACK
     Dosage: UNK UNKNOWN, UNKNOWN
     Route: 065
     Dates: start: 2000, end: 2016
  3. LIPITOR [Concomitant]
     Active Substance: ATORVASTATIN CALCIUM
     Indication: BLOOD CHOLESTEROL INCREASED
     Dosage: UNK UNKNOWN, UNKNOWN
     Route: 065
     Dates: start: 2000, end: 2016
  4. RAMIPRIL. [Concomitant]
     Active Substance: RAMIPRIL
     Indication: HYPERTENSION
     Dosage: UNK UNKNOWN, UNKNOWN
     Route: 065
     Dates: start: 1999, end: 2016

REACTIONS (4)
  - Transient ischaemic attack [Not Recovered/Not Resolved]
  - Cerebrovascular accident [Unknown]
  - Vascular occlusion [Unknown]
  - Polycythaemia [Unknown]

NARRATIVE: CASE EVENT DATE: 20101025
